FAERS Safety Report 7645483-9 (Version None)
Quarter: 2011Q3

REPORT INFORMATION
  Report Type: 
  Country: None (occurrence: None)
  Receive Date: 20110729
  Receipt Date: 20110728
  Transmission Date: 20111222
  Serious: Yes (Death, Hospitalization)
  Sender: FDA-Public Use
  Company Number: BR-BAYER-2011-066238

PATIENT
  Age: 72 Year
  Sex: Female
  Weight: 75 kg

DRUGS (9)
  1. METFORMIN HCL [Concomitant]
     Indication: DIABETES MELLITUS
     Dosage: 1700 MG, QD
     Route: 048
     Dates: end: 20110523
  2. PROPRANOLOL [Concomitant]
     Indication: HYPERTENSION
     Dosage: 120 MG, QD
     Route: 048
     Dates: end: 20110523
  3. FUROSEMIDE [Concomitant]
     Indication: DIURETIC THERAPY
     Dosage: 40 MG, QD
     Route: 048
     Dates: end: 20110523
  4. TRAMADOL HCL [Concomitant]
     Indication: PAIN
     Dosage: UNK
     Route: 048
     Dates: start: 20110624, end: 20110625
  5. AMLODIPINE [Concomitant]
     Indication: DIURETIC THERAPY
     Dosage: 40 MG, QD
     Route: 048
     Dates: end: 20110523
  6. SPIRONOLACTONE [Concomitant]
     Indication: DIURETIC THERAPY
     Dosage: 150 MG, QD
     Route: 048
     Dates: end: 20110523
  7. CAPTOPRIL [Concomitant]
     Indication: HYPERTENSION
     Dosage: 50 MG, TID
     Route: 048
     Dates: end: 20110523
  8. CIPROFLOXACIN [Concomitant]
     Indication: URINARY TRACT INFECTION
     Dosage: 500 MG, BID
     Route: 048
     Dates: start: 20110610, end: 20110624
  9. SORAFENIB (RAF KINASE INHIBITOR) [Suspect]
     Indication: HEPATIC NEOPLASM MALIGNANT
     Dosage: 400 MG, BID
     Route: 048
     Dates: start: 20110201, end: 20110523

REACTIONS (3)
  - SHOCK HAEMORRHAGIC [None]
  - UPPER GASTROINTESTINAL HAEMORRHAGE [None]
  - HEPATIC ENCEPHALOPATHY [None]
